FAERS Safety Report 7451937-0 (Version None)
Quarter: 2011Q2

REPORT INFORMATION
  Report Type: 
  Country: None (occurrence: None)
  Receive Date: 20110422
  Receipt Date: 20110415
  Transmission Date: 20111010
  Serious: Yes (Death)
  Sender: FDA-Public Use
  Company Number: OMPQ-PR-1104S-0359

PATIENT

DRUGS (1)
  1. OMNIPAQUE 70 [Suspect]
     Indication: CENTRAL VENOUS CATHETERISATION
     Dosage: 1 ML DILUTED IN 1 ML NORMAL SALINE, SINGLE DOSE, INTRAVENOUS
     Route: 042

REACTIONS (1)
  - DEATH [None]
